FAERS Safety Report 5338968-1 (Version None)
Quarter: 2007Q2

REPORT INFORMATION
  Report Type: 
  Country: None (occurrence: None)
  Receive Date: 20070530
  Receipt Date: 20070518
  Transmission Date: 20071010
  Serious: Yes (Other)
  Sender: FDA-Public Use
  Company Number: PFIZER INC-2007040680

PATIENT
  Sex: Male

DRUGS (1)
  1. EPANUTIN [Suspect]
     Route: 048

REACTIONS (2)
  - BURNING SENSATION [None]
  - DYSPHAGIA [None]
